FAERS Safety Report 19238014 (Version 2)
Quarter: 2021Q2

REPORT INFORMATION
  Report Type: Spontaneous
  Country: US (occurrence: US)
  Receive Date: 20210510
  Receipt Date: 20210517
  Transmission Date: 20210717
  Serious: Yes (Death, Hospitalization)
  Sender: FDA-Public Use
  Company Number: US-PFIZER INC-2021474524

PATIENT
  Age: 79 Year
  Sex: Male
  Weight: 136.08 kg

DRUGS (1)
  1. XELJANZ XR [Suspect]
     Active Substance: TOFACITINIB CITRATE
     Indication: RHEUMATOID ARTHRITIS
     Dosage: 11 MG, 1X/DAY
     Route: 048

REACTIONS (4)
  - Headache [Unknown]
  - Pyrexia [Unknown]
  - COVID-19 [Fatal]
  - Body height decreased [Unknown]

NARRATIVE: CASE EVENT DATE: 20210408
